FAERS Safety Report 21102258 (Version 1)
Quarter: 2022Q3

REPORT INFORMATION
  Report Type: Spontaneous
  Country: US (occurrence: US)
  Receive Date: 20220719
  Receipt Date: 20220719
  Transmission Date: 20221026
  Serious: Yes (Other)
  Sender: FDA-Public Use
  Company Number: US-BAUSCH-BL-2022-017989

PATIENT
  Age: 65 Year
  Sex: Female
  Weight: 104.42 kg

DRUGS (1)
  1. BESIVANCE [Suspect]
     Active Substance: BESIFLOXACIN
     Indication: Preoperative care
     Route: 047
     Dates: start: 20220713

REACTIONS (1)
  - Blood glucose increased [Unknown]
